FAERS Safety Report 14217984 (Version 2)
Quarter: 2018Q1

REPORT INFORMATION
  Report Type: Spontaneous
  Country: RO (occurrence: RO)
  Receive Date: 20171123
  Receipt Date: 20180309
  Transmission Date: 20180508
  Serious: Yes (Other)
  Sender: FDA-Public Use
  Company Number: RO-ROCHE-2009698

PATIENT
  Age: 42 Year
  Sex: Female
  Weight: 53 kg

DRUGS (2)
  1. CAPECITABINE. [Suspect]
     Active Substance: CAPECITABINE
     Indication: BREAST CANCER METASTATIC
     Dosage: 3000 MG DAILY FOR 14 DAYS FOLLOWED BY 7 DAYS REST PERIOD
     Route: 048
     Dates: start: 20160420, end: 20170830
  2. AVASTIN [Suspect]
     Active Substance: BEVACIZUMAB
     Indication: BREAST CANCER METASTATIC
     Route: 042
     Dates: start: 20160420, end: 20170830

REACTIONS (3)
  - Pulmonary fibrosis [Unknown]
  - Palmar-plantar erythrodysaesthesia syndrome [Unknown]
  - Proteinuria [Recovering/Resolving]

NARRATIVE: CASE EVENT DATE: 201609
